FAERS Safety Report 5353746-5 (Version None)
Quarter: 2007Q2

REPORT INFORMATION
  Report Type: 
  Country: None (occurrence: None)
  Receive Date: 20070521
  Receipt Date: 20070131
  Transmission Date: 20071010
  Serious: No
  Sender: FDA-Public Use
  Company Number: WAES 0702USA00234

PATIENT
  Sex: 0

DRUGS (1)
  1. JANUVIA [Suspect]
     Dosage: PO

REACTIONS (1)
  - DYSPEPSIA [None]
